FAERS Safety Report 10951798 (Version 21)
Quarter: 2018Q4

REPORT INFORMATION
  Report Type: Report from Study
  Country: CA (occurrence: CA)
  Receive Date: 20150325
  Receipt Date: 20181023
  Transmission Date: 20190204
  Serious: Yes (Other)
  Sender: FDA-Public Use
  Company Number: CA-ROCHE-1159305

PATIENT
  Age: 44 Year
  Sex: Female
  Weight: 53 kg

DRUGS (10)
  1. ACTEMRA [Suspect]
     Active Substance: TOCILIZUMAB
     Indication: RHEUMATOID ARTHRITIS
     Route: 042
     Dates: start: 20121026
  2. NAPROXEN. [Concomitant]
     Active Substance: NAPROXEN
  3. ACTEMRA [Suspect]
     Active Substance: TOCILIZUMAB
     Route: 042
     Dates: start: 20180817
  4. ACTEMRA [Suspect]
     Active Substance: TOCILIZUMAB
     Route: 042
     Dates: start: 20150106
  5. LOSEC [Concomitant]
     Active Substance: OMEPRAZOLE
     Dosage: AS NEEDED
     Route: 065
  6. ACTEMRA [Suspect]
     Active Substance: TOCILIZUMAB
     Route: 042
     Dates: start: 20160329
  7. FLAX OIL [Concomitant]
     Route: 048
  8. ACTEMRA [Suspect]
     Active Substance: TOCILIZUMAB
     Route: 042
     Dates: start: 20161209
  9. SYNTHROID [Suspect]
     Active Substance: LEVOTHYROXINE SODIUM
     Indication: HYPOTHYROIDISM
     Route: 065
  10. PREDNISONE. [Concomitant]
     Active Substance: PREDNISONE

REACTIONS (31)
  - Eye infection [Recovered/Resolved]
  - Heart rate increased [Recovering/Resolving]
  - Joint range of motion decreased [Not Recovered/Not Resolved]
  - Disability assessment scale score increased [Unknown]
  - Breast inflammation [Not Recovered/Not Resolved]
  - Oropharyngeal pain [Recovered/Resolved]
  - Musculoskeletal stiffness [Not Recovered/Not Resolved]
  - Rhinorrhoea [Recovered/Resolved]
  - Joint swelling [Not Recovered/Not Resolved]
  - Gastroenteritis [Unknown]
  - Oxygen saturation decreased [Unknown]
  - Staphylococcal infection [Recovering/Resolving]
  - Nasopharyngitis [Recovered/Resolved]
  - Hypotension [Unknown]
  - Productive cough [Recovering/Resolving]
  - Oxygen saturation decreased [Unknown]
  - Drug effect decreased [Unknown]
  - Nasal congestion [Recovering/Resolving]
  - Insomnia [Not Recovered/Not Resolved]
  - Heart rate decreased [Unknown]
  - Hypersensitivity [Unknown]
  - Influenza [Not Recovered/Not Resolved]
  - Blood pressure increased [Unknown]
  - Vasculitis [Not Recovered/Not Resolved]
  - Cough [Recovered/Resolved]
  - Infusion related reaction [Unknown]
  - Gastroenteritis viral [Recovered/Resolved]
  - Heart rate decreased [Unknown]
  - Arthralgia [Not Recovered/Not Resolved]
  - Blood pressure increased [Unknown]
  - Fatigue [Not Recovered/Not Resolved]

NARRATIVE: CASE EVENT DATE: 201211
